FAERS Safety Report 9643485 (Version 3)
Quarter: 2014Q1

REPORT INFORMATION
  Report Type: Report from Study
  Country: US (occurrence: US)
  Receive Date: 20131024
  Receipt Date: 20140213
  Transmission Date: 20141002
  Serious: Yes (Death, Hospitalization, Other)
  Sender: FDA-Public Use
  Company Number: US-ACTELION-A-NJ2013-90031

PATIENT
  Age: 90 Year
  Sex: Female

DRUGS (2)
  1. TRACLEER [Suspect]
     Indication: COR PULMONALE CHRONIC
     Dosage: 125 MG, UNK
     Route: 048
     Dates: start: 20090107
  2. OXYGEN [Concomitant]

REACTIONS (3)
  - Death [Fatal]
  - Emphysema [Unknown]
  - Cyanosis [Unknown]
